FAERS Safety Report 25379996 (Version 1)
Quarter: 2025Q2

REPORT INFORMATION
  Report Type: Spontaneous
  Country: US (occurrence: None)
  Receive Date: 20250530
  Receipt Date: 20250530
  Transmission Date: 20250716
  Serious: Yes (Disabling)
  Sender: FDA-CTU
  Company Number: None

PATIENT
  Age: 58 Year
  Sex: Female
  Weight: 103.95 kg

DRUGS (10)
  1. JARDIANCE [Suspect]
     Active Substance: EMPAGLIFLOZIN
     Indication: Diabetes mellitus
  2. DEVICE [Concomitant]
     Active Substance: DEVICE
  3. INSULIN NOS [Concomitant]
     Active Substance: INSULIN NOS
  4. AMLODIPINE [Concomitant]
     Active Substance: AMLODIPINE BESYLATE
  5. METOPROLOL [Concomitant]
     Active Substance: METOPROLOL
  6. HYDROCHLOROTHIAZIDE [Concomitant]
     Active Substance: HYDROCHLOROTHIAZIDE
  7. ROSUVASTATIN [Concomitant]
     Active Substance: ROSUVASTATIN
  8. supber b complex [Concomitant]
  9. LORATADINE [Concomitant]
     Active Substance: LORATADINE
  10. CRANBERRY [Concomitant]
     Active Substance: CRANBERRY

REACTIONS (3)
  - Constipation [None]
  - Dehydration [None]
  - Pruritus [None]

NARRATIVE: CASE EVENT DATE: 20250530
